FAERS Safety Report 20763743 (Version 3)
Quarter: 2022Q2

REPORT INFORMATION
  Report Type: Spontaneous
  Country: US (occurrence: US)
  Receive Date: 20220428
  Receipt Date: 20220517
  Transmission Date: 20220721
  Serious: Yes (Hospitalization, Other)
  Sender: FDA-Public Use
  Company Number: US-PFIZER INC-202200532657

PATIENT
  Age: 52 Year
  Sex: Female

DRUGS (1)
  1. IBRANCE [Suspect]
     Active Substance: PALBOCICLIB
     Dosage: UNK, CYCLIC (21 DAY CYCLE)

REACTIONS (7)
  - Thermal burn [Unknown]
  - Full blood count decreased [Unknown]
  - Emotional disorder [Unknown]
  - Fatigue [Unknown]
  - Hot flush [Unknown]
  - Skin sensitisation [Unknown]
  - Bacterial infection [Unknown]
